FAERS Safety Report 10758970 (Version 2)
Quarter: 2015Q1

REPORT INFORMATION
  Report Type: Spontaneous
  Country: US (occurrence: US)
  Receive Date: 20150203
  Receipt Date: 20150326
  Transmission Date: 20150721
  Serious: Yes (Other)
  Sender: FDA-Public Use
  Company Number: US-PFIZER INC-2015043236

PATIENT
  Age: 53 Year
  Sex: Male
  Weight: 122 kg

DRUGS (1)
  1. AMIODARONE HCL [Suspect]
     Active Substance: AMIODARONE HYDROCHLORIDE
     Indication: ATRIAL FIBRILLATION
     Dosage: UNK

REACTIONS (3)
  - Palpitations [Unknown]
  - Atrial flutter [Unknown]
  - Disease recurrence [Unknown]

NARRATIVE: CASE EVENT DATE: 200410
